FAERS Safety Report 13233158 (Version 1)
Quarter: 2017Q1

REPORT INFORMATION
  Report Type: Spontaneous
  Country: US (occurrence: US)
  Receive Date: 20170215
  Receipt Date: 20170215
  Transmission Date: 20170428
  Serious: Yes (Other)
  Sender: FDA-Public Use
  Company Number: US-ENDO PHARMACEUTICALS INC-2017-000553

PATIENT
  Age: 43 Year
  Sex: Female

DRUGS (2)
  1. BENADRYL [Concomitant]
     Active Substance: DIPHENHYDRAMINE HYDROCHLORIDE
     Indication: PRODUCT USED FOR UNKNOWN INDICATION
     Dosage: UNK UNK, UNKNOWN
     Route: 065
  2. LORAZEPAM TABLETS 2MG [Suspect]
     Active Substance: LORAZEPAM
     Indication: INSOMNIA
     Dosage: 2 MG, UNKNOWN
     Route: 065
     Dates: start: 2009, end: 20151218

REACTIONS (8)
  - Hyperthyroidism [Recovered/Resolved]
  - Off label use [Unknown]
  - Paraesthesia [None]
  - Activities of daily living impaired [None]
  - Incorrect drug administration duration [Unknown]
  - Feeling abnormal [Unknown]
  - Bedridden [None]
  - Nightmare [None]

NARRATIVE: CASE EVENT DATE: 20151221
